FAERS Safety Report 11272843 (Version 5)
Quarter: 2016Q1

REPORT INFORMATION
  Report Type: Spontaneous
  Country: US (occurrence: US)
  Receive Date: 20150715
  Receipt Date: 20160205
  Transmission Date: 20160525
  Serious: Yes (Hospitalization, Other)
  Sender: FDA-Public Use
  Company Number: US-PFIZER INC-2015192732

PATIENT
  Age: 74 Year
  Sex: Male
  Weight: 90.7 kg

DRUGS (2)
  1. SUTENT [Suspect]
     Active Substance: SUNITINIB MALATE
     Indication: RENAL CELL CARCINOMA RECURRENT
     Dosage: 50 MG, DAILY (2 TABLETS IN MORNING AND 2 IN EVENING)
     Route: 048
     Dates: start: 2015
  2. SUTENT [Suspect]
     Active Substance: SUNITINIB MALATE
     Dosage: 50 MG, UNK
     Dates: start: 201508

REACTIONS (13)
  - Sinus disorder [Unknown]
  - Anal inflammation [Unknown]
  - Fall [Unknown]
  - Diarrhoea [Unknown]
  - Fatigue [Unknown]
  - Back injury [Unknown]
  - Malaise [Unknown]
  - Oral candidiasis [Unknown]
  - Abdominal pain upper [Unknown]
  - Pneumonia [Unknown]
  - Frequent bowel movements [Not Recovered/Not Resolved]
  - Headache [Unknown]
  - Weight decreased [Unknown]
